FAERS Safety Report 12429285 (Version 1)
Quarter: 2016Q2

REPORT INFORMATION
  Report Type: Spontaneous
  Country: US (occurrence: US)
  Receive Date: 20160602
  Receipt Date: 20160602
  Transmission Date: 20160815
  Serious: Yes (Other)
  Sender: FDA-Public Use
  Company Number: US-ASTRAZENECA-2016SE58352

PATIENT
  Sex: Female

DRUGS (1)
  1. BRILINTA [Suspect]
     Active Substance: TICAGRELOR
     Indication: ACUTE CORONARY SYNDROME
     Dosage: 90 MILLIGRAMS TWO TIMES A DAY
     Route: 048

REACTIONS (6)
  - Fatigue [Unknown]
  - Dyspnoea [Unknown]
  - Shock [Unknown]
  - Chills [Unknown]
  - Insomnia [Unknown]
  - Pyrexia [Unknown]
